FAERS Safety Report 7209364-7 (Version None)
Quarter: 2011Q1

REPORT INFORMATION
  Report Type: 
  Country: None (occurrence: None)
  Receive Date: 20110104
  Receipt Date: 20101223
  Transmission Date: 20110831
  Serious: Yes (Hospitalization)
  Sender: FDA-Public Use
  Company Number: US-AMGEN-USASP2010008989

PATIENT

DRUGS (1)
  1. ENBREL [Suspect]
     Indication: RHEUMATOID ARTHRITIS
     Dates: start: 20010101

REACTIONS (5)
  - NEPHRECTOMY [None]
  - POLLAKIURIA [None]
  - BACK PAIN [None]
  - NEOPLASM MALIGNANT [None]
  - DEVICE LEAKAGE [None]
